FAERS Safety Report 8687016 (Version 3)
Quarter: 2013Q4

REPORT INFORMATION
  Report Type: Spontaneous
  Country: CH (occurrence: CH)
  Receive Date: 20120727
  Receipt Date: 20131031
  Transmission Date: 20140711
  Serious: Yes (Hospitalization)
  Sender: FDA-Public Use
  Company Number: CH-009507513-1207CHE009925

PATIENT
  Age: 82 Year
  Sex: Female

DRUGS (7)
  1. REMERON [Suspect]
     Indication: DEPRESSION
     Dosage: 30 MG, QD
     Route: 048
     Dates: start: 201104
  2. ORFIRIL [Suspect]
     Indication: DEPRESSION
     Dosage: 300 MG, BID
     Dates: start: 2008
  3. AXURA [Concomitant]
     Indication: GASTROSTOMY
     Dosage: 10 MG, BID
  4. LEPONEX [Concomitant]
     Indication: GASTROSTOMY
     Dosage: 300 MG, QD
  5. PANTOZOL [Concomitant]
     Indication: GASTROSTOMY
     Dosage: 40 MG, QD
  6. THIAMINE [Concomitant]
     Indication: GASTROSTOMY
     Dosage: 300 MG, QD
  7. MUCOFLUID [Concomitant]
     Indication: GASTROSTOMY
     Dosage: 600 MG, QD

REACTIONS (2)
  - Upper gastrointestinal haemorrhage [Recovered/Resolved]
  - Haematemesis [Recovered/Resolved]
